FAERS Safety Report 10371076 (Version 2)
Quarter: 2014Q3

REPORT INFORMATION
  Report Type: Spontaneous
  Country: IT (occurrence: IT)
  Receive Date: 20140808
  Receipt Date: 20140818
  Transmission Date: 20150326
  Serious: Yes (Hospitalization)
  Sender: FDA-Public Use
  Company Number: IT-TEVA-499050ISR

PATIENT
  Age: 27 Year
  Sex: Female

DRUGS (2)
  1. ACIDO VALPROICO SANDOZ 500 MG [Suspect]
     Active Substance: VALPROIC ACID
     Indication: PRODUCT USED FOR UNKNOWN INDICATION
     Dosage: 15 GRAM DAILY;
     Route: 048
     Dates: start: 20130424, end: 20130424
  2. SERTRALINA TEVA PHARMA BV 100 MG [Suspect]
     Active Substance: SERTRALINE HYDROCHLORIDE
     Indication: DEPRESSION
     Dosage: 1.5 GRAM DAILY;
     Route: 048
     Dates: start: 20130424, end: 20130424

REACTIONS (4)
  - Toxicity to various agents [Recovered/Resolved]
  - Psychomotor retardation [Recovered/Resolved]
  - Somnolence [Recovered/Resolved]
  - Drug abuse [Recovered/Resolved]

NARRATIVE: CASE EVENT DATE: 20130424
